FAERS Safety Report 24303229 (Version 1)
Quarter: 2024Q3

REPORT INFORMATION
  Report Type: Spontaneous
  Country: US (occurrence: None)
  Receive Date: 20240909
  Receipt Date: 20240909
  Transmission Date: 20241016
  Serious: Yes (Hospitalization, Other)
  Sender: Public
  Company Number: None

PATIENT
  Age: 60 Year
  Sex: Male

DRUGS (2)
  1. SPRYCEL [Suspect]
     Active Substance: DASATINIB
     Indication: Chronic myeloid leukaemia
     Dosage: 70MG QD
  2. AMIODARONE [Suspect]
     Active Substance: AMIODARONE

REACTIONS (4)
  - Tachycardia [None]
  - Arrhythmia [None]
  - Heart rate decreased [None]
  - Drug interaction [None]
